FAERS Safety Report 4887261-X (Version None)
Quarter: 2005Q4

REPORT INFORMATION
  Report Type: 
  Country: None (occurrence: None)
  Receive Date: 20051220
  Receipt Date: 20050223
  Transmission Date: 20060501
  Serious: Yes (Other)
  Sender: FDA-Public Use
  Company Number: HQWYE779703MAR05

PATIENT
  Age: 66 Year
  Sex: Female
  Weight: 57.2 kg

DRUGS (7)
  1. EFFEXOR XR [Suspect]
     Indication: ANXIETY
     Dosage: 37.5 MG 1X PER 1 DAY, ORAL ; 75 MG 1X PER 1 DAY, ORAL ; 37.5 MG 1X PER 1 DAY, ORAL
     Route: 048
     Dates: start: 20041101, end: 20040101
  2. EFFEXOR XR [Suspect]
     Indication: DEPRESSION
     Dosage: 37.5 MG 1X PER 1 DAY, ORAL ; 75 MG 1X PER 1 DAY, ORAL ; 37.5 MG 1X PER 1 DAY, ORAL
     Route: 048
     Dates: start: 20041101, end: 20040101
  3. EFFEXOR XR [Suspect]
     Indication: ANXIETY
     Dosage: 37.5 MG 1X PER 1 DAY, ORAL ; 75 MG 1X PER 1 DAY, ORAL ; 37.5 MG 1X PER 1 DAY, ORAL
     Route: 048
     Dates: start: 20041001, end: 20041101
  4. EFFEXOR XR [Suspect]
     Indication: DEPRESSION
     Dosage: 37.5 MG 1X PER 1 DAY, ORAL ; 75 MG 1X PER 1 DAY, ORAL ; 37.5 MG 1X PER 1 DAY, ORAL
     Route: 048
     Dates: start: 20041001, end: 20041101
  5. EFFEXOR XR [Suspect]
     Indication: ANXIETY
     Dosage: 37.5 MG 1X PER 1 DAY, ORAL ; 75 MG 1X PER 1 DAY, ORAL ; 37.5 MG 1X PER 1 DAY, ORAL
     Route: 048
     Dates: start: 20040101
  6. EFFEXOR XR [Suspect]
     Indication: DEPRESSION
     Dosage: 37.5 MG 1X PER 1 DAY, ORAL ; 75 MG 1X PER 1 DAY, ORAL ; 37.5 MG 1X PER 1 DAY, ORAL
     Route: 048
     Dates: start: 20040101
  7. ATIVAN [Concomitant]

REACTIONS (2)
  - DIZZINESS [None]
  - GASTRIC DISORDER [None]
